FAERS Safety Report 9016472 (Version 2)
Quarter: 2013Q1

REPORT INFORMATION
  Report Type: Report from Study
  Country: US (occurrence: US)
  Receive Date: 20130116
  Receipt Date: 20130215
  Transmission Date: 20140127
  Serious: Yes (Hospitalization, Other)
  Sender: FDA-Public Use
  Company Number: US-US-EMD SERONO, INC.-7186624

PATIENT
  Sex: Female

DRUGS (3)
  1. REBIF [Suspect]
     Indication: MULTIPLE SCLEROSIS
     Route: 058
     Dates: start: 20080808
  2. TYLENOL [Concomitant]
     Indication: BACK PAIN
  3. IBUPROFEN [Concomitant]
     Indication: BACK PAIN

REACTIONS (3)
  - Accidental overdose [Unknown]
  - Back pain [Unknown]
  - Injection site erythema [Not Recovered/Not Resolved]
